FAERS Safety Report 21960519 (Version 4)
Quarter: 2023Q2

REPORT INFORMATION
  Report Type: Report from Study
  Country: US (occurrence: US)
  Receive Date: 20230207
  Receipt Date: 20230504
  Transmission Date: 20230721
  Serious: Yes (Other)
  Sender: FDA-Public Use
  Company Number: US-002147023-NVSC2023US022709

PATIENT
  Sex: Female

DRUGS (2)
  1. COSENTYX [Suspect]
     Active Substance: SECUKINUMAB
     Indication: Psoriasis
     Dosage: 300 MG
     Route: 065
  2. COSENTYX [Suspect]
     Active Substance: SECUKINUMAB

REACTIONS (5)
  - Psoriasis [Not Recovered/Not Resolved]
  - Pain [Not Recovered/Not Resolved]
  - Sinusitis [Unknown]
  - Sneezing [Not Recovered/Not Resolved]
  - Cough [Not Recovered/Not Resolved]
